FAERS Safety Report 22280788 (Version 1)
Quarter: 2023Q2

REPORT INFORMATION
  Report Type: Report from Study
  Country: US (occurrence: US)
  Receive Date: 20230503
  Receipt Date: 20230503
  Transmission Date: 20230721
  Serious: No
  Sender: FDA-Public Use
  Company Number: US-ABBVIE-4282686

PATIENT
  Sex: Female

DRUGS (2)
  1. HUMIRA [Suspect]
     Active Substance: ADALIMUMAB
     Indication: Psoriatic arthropathy
     Dosage: CITRATE FREE, FORM STRENGTH: 40MG
     Route: 058
     Dates: start: 202109
  2. HUMIRA [Suspect]
     Active Substance: ADALIMUMAB
     Indication: Psoriasis
     Route: 058

REACTIONS (8)
  - Psoriasis [Not Recovered/Not Resolved]
  - Injection site reaction [Recovered/Resolved]
  - Injection site pain [Recovered/Resolved]
  - Arthralgia [Not Recovered/Not Resolved]
  - Therapeutic product effect incomplete [Not Recovered/Not Resolved]
  - Injection site papule [Recovered/Resolved]
  - Injection site pruritus [Recovered/Resolved]
  - Injection site dryness [Not Recovered/Not Resolved]
